FAERS Safety Report 10923175 (Version 4)
Quarter: 2015Q3

REPORT INFORMATION
  Report Type: Spontaneous
  Country: US (occurrence: US)
  Receive Date: 20150317
  Receipt Date: 20150707
  Transmission Date: 20151125
  Serious: Yes (Hospitalization, Other)
  Sender: FDA-Public Use
  Company Number: US-009507513-1110USA03271

PATIENT
  Sex: Female
  Weight: 69.39 kg

DRUGS (4)
  1. ALENDRONATE SODIUM. [Suspect]
     Active Substance: ALENDRONATE SODIUM
     Indication: OSTEOPENIA
  2. FOSAMAX [Suspect]
     Active Substance: ALENDRONATE SODIUM
     Indication: OSTEOPENIA
  3. FOSAMAX [Suspect]
     Active Substance: ALENDRONATE SODIUM
     Indication: OSTEOPOROSIS
     Dosage: 70 MG, QW
     Route: 048
     Dates: start: 200308, end: 201106
  4. ALENDRONATE SODIUM. [Suspect]
     Active Substance: ALENDRONATE SODIUM
     Indication: OSTEOPOROSIS
     Dosage: 70 MG, QW
     Route: 048
     Dates: start: 201001, end: 201106

REACTIONS (25)
  - Femur fracture [Recovered/Resolved]
  - Muscular weakness [Unknown]
  - Joint swelling [Unknown]
  - Arthritis [Unknown]
  - Foot fracture [Unknown]
  - Intramedullary rod insertion [Unknown]
  - Femur fracture [Recovered/Resolved]
  - Bronchitis [Recovered/Resolved]
  - Thyroid neoplasm [Unknown]
  - Nephrolithiasis [Unknown]
  - Sleep apnoea syndrome [Unknown]
  - Renal stone removal [Unknown]
  - Back pain [Unknown]
  - Gastric ulcer [Unknown]
  - Foot fracture [Unknown]
  - Pulmonary mass [Unknown]
  - Spinal osteoarthritis [Unknown]
  - Essential tremor [Unknown]
  - Cardiac murmur [Unknown]
  - Dialysis [Unknown]
  - Arthropathy [Unknown]
  - Intramedullary rod insertion [Unknown]
  - Large intestinal polypectomy [Unknown]
  - Blood potassium increased [Unknown]
  - Hyperlipidaemia [Unknown]

NARRATIVE: CASE EVENT DATE: 200512
